FAERS Safety Report 6642155-4 (Version None)
Quarter: 2010Q1

REPORT INFORMATION
  Report Type: 
  Country: None (occurrence: None)
  Receive Date: 20100319
  Receipt Date: 20100311
  Transmission Date: 20100710
  Serious: Yes (Hospitalization, Other)
  Sender: FDA-Public Use
  Company Number: FR-BRISTOL-MYERS SQUIBB COMPANY-15015118

PATIENT
  Age: 62 Year
  Sex: Female

DRUGS (5)
  1. GLUCOPHAGE [Suspect]
     Indication: TYPE 2 DIABETES MELLITUS
     Route: 048
  2. DIGOXIN [Concomitant]
  3. ATACAND [Concomitant]
  4. OFLOXACIN [Concomitant]
     Indication: BRONCHITIS
     Dates: start: 20100120
  5. AUGMENTIN [Concomitant]
     Indication: BRONCHITIS

REACTIONS (3)
  - HYPERKALAEMIA [None]
  - LACTIC ACIDOSIS [None]
  - RENAL FAILURE [None]
